FAERS Safety Report 9663680 (Version 1)
Quarter: 2013Q4

REPORT INFORMATION
  Report Type: Report from Study
  Country: AR (occurrence: AR)
  Receive Date: 20131101
  Receipt Date: 20131101
  Transmission Date: 20140711
  Serious: Yes (Other)
  Sender: FDA-Public Use
  Company Number: PHHY2013AR123395

PATIENT
  Age: 60 Year
  Sex: Female

DRUGS (3)
  1. DIOVAN [Suspect]
     Indication: HYPERTENSION
     Dosage: 1 TABLET (160 MG), DAILY
     Route: 048
  2. GALVUS MET [Suspect]
     Indication: DIABETES MELLITUS
     Dosage: 2 TABLETS (850 MG/UNK), DAILY
     Route: 048
  3. T4 [Concomitant]
     Indication: THYROID DISORDER
     Dosage: UNK UKN, UNK
     Route: 048

REACTIONS (1)
  - Uterine cancer [Recovered/Resolved]
